FAERS Safety Report 9706822 (Version 3)
Quarter: 2013Q4

REPORT INFORMATION
  Report Type: Report from Study
  Country: AU (occurrence: AU)
  Receive Date: 20131125
  Receipt Date: 20131226
  Transmission Date: 20140711
  Serious: Yes (Hospitalization)
  Sender: FDA-Public Use
  Company Number: PHHY2013AU134082

PATIENT
  Age: 67 Year
  Sex: Female

DRUGS (4)
  1. SANDOSTATIN LAR [Suspect]
     Indication: CARCINOID SYNDROME
     Dosage: 30 MG, UNK
     Route: 030
  2. SANDOSTATIN LAR [Suspect]
     Dosage: 30 MG, UNK
     Route: 030
     Dates: start: 20131104
  3. SANDOSTATIN LAR [Suspect]
     Dosage: 20 MG, UNK
     Route: 030
  4. DEXAMETHASONE [Concomitant]
     Dosage: UNK UKN, UNK

REACTIONS (2)
  - Hepatic pain [Recovering/Resolving]
  - Diarrhoea [Not Recovered/Not Resolved]
